FAERS Safety Report 7961149-X (Version None)
Quarter: 2011Q4

REPORT INFORMATION
  Report Type: 
  Country: None (occurrence: None)
  Receive Date: 20111207
  Receipt Date: 20111202
  Transmission Date: 20120403
  Serious: Yes (Other)
  Sender: FDA-Public Use
  Company Number: TN-PFIZER INC-2011294000

PATIENT
  Age: 65 Year
  Sex: Female

DRUGS (2)
  1. LYRICA [Suspect]
     Dosage: 150 MG, 2X/DAY
     Route: 048
     Dates: start: 20110101, end: 20110101
  2. LYRICA [Suspect]
     Indication: CARPAL TUNNEL SYNDROME
     Dosage: 75 MG, 2X/DAY
     Route: 048
     Dates: start: 20110701, end: 20110101

REACTIONS (2)
  - EYELID PTOSIS [None]
  - EYELID OEDEMA [None]
